FAERS Safety Report 9682637 (Version 1)
Quarter: 2013Q4

REPORT INFORMATION
  Report Type: Spontaneous
  Country: BR (occurrence: BR)
  Receive Date: 20131112
  Receipt Date: 20131112
  Transmission Date: 20140711
  Serious: Yes (Other)
  Sender: FDA-Public Use
  Company Number: BR-UCBSA-102509

PATIENT
  Age: 47 Year
  Sex: Female

DRUGS (13)
  1. CIMZIA [Suspect]
     Dosage: 200 MG/ML
     Dates: start: 20131008
  2. FOLIC ACID [Concomitant]
     Indication: ARTHRITIS
  3. PANTOPRAZOLE [Concomitant]
     Indication: HIATUS HERNIA
  4. PANTOPRAZOLE [Concomitant]
     Indication: GASTROOESOPHAGEAL REFLUX DISEASE
  5. DHEA [Concomitant]
     Indication: MENOPAUSE
  6. PRELONE [Concomitant]
     Indication: ARTHRITIS
  7. METHOTREXATE [Concomitant]
     Indication: ARTHRITIS
  8. VITAMIN D [Concomitant]
     Indication: MENOPAUSE
  9. LINUM USITASSIMUM [Concomitant]
     Indication: MENOPAUSE
     Dosage: OIL
  10. OMEGA-3 [Concomitant]
     Indication: MENOPAUSE
  11. OMEGA-3 [Concomitant]
     Indication: MENOPAUSE
  12. SYNTHROID [Concomitant]
     Indication: HYPOTHYROIDISM
  13. HUMIRA [Concomitant]

REACTIONS (5)
  - Viral infection [Unknown]
  - Conjunctivitis [Unknown]
  - Throat irritation [Unknown]
  - Arthralgia [Not Recovered/Not Resolved]
  - Drug dose omission [Recovered/Resolved]
